FAERS Safety Report 12896091 (Version 1)
Quarter: 2016Q4

REPORT INFORMATION
  Report Type: Spontaneous
  Country: US (occurrence: US)
  Receive Date: 20161031
  Receipt Date: 20161031
  Transmission Date: 20170207
  Serious: No
  Sender: FDA-Public Use
  Company Number: US-JAZZ-2016-US-016377

PATIENT
  Sex: Female
  Weight: 54.42 kg

DRUGS (27)
  1. DEXEDRINE [Suspect]
     Active Substance: DEXTROAMPHETAMINE SULFATE
     Indication: PRODUCT USED FOR UNKNOWN INDICATION
  2. METAMUCIL [Concomitant]
     Active Substance: PLANTAGO SEED
  3. XYREM [Suspect]
     Active Substance: SODIUM OXYBATE
     Dosage: 4.5 G, BID
     Route: 048
     Dates: start: 201210, end: 20160824
  4. FISH OIL [Concomitant]
     Active Substance: FISH OIL
  5. MAGNESIUM OXIDE. [Concomitant]
     Active Substance: MAGNESIUM OXIDE
  6. MULTIVITAMINS [Concomitant]
     Active Substance: VITAMINS
  7. ADDERALL [Concomitant]
     Active Substance: AMPHETAMINE ASPARTATE\AMPHETAMINE SULFATE\DEXTROAMPHETAMINE SACCHARATE\DEXTROAMPHETAMINE SULFATE
  8. GLUCOSAMINE MSM [Concomitant]
  9. COENZYME Q10 [Concomitant]
     Active Substance: UBIDECARENONE
  10. ORTHO TRI CYCLEN LO [Concomitant]
     Active Substance: ETHINYL ESTRADIOL\NORGESTIMATE
  11. AMANTADINE [Concomitant]
     Active Substance: AMANTADINE
  12. METHYLPHENIDATE. [Concomitant]
     Active Substance: METHYLPHENIDATE
  13. ZOLOFT [Concomitant]
     Active Substance: SERTRALINE HYDROCHLORIDE
  14. VITAMIN C [Concomitant]
     Active Substance: ASCORBIC ACID
  15. NAPROXEN SODIUM. [Concomitant]
     Active Substance: NAPROXEN SODIUM
  16. XYREM [Suspect]
     Active Substance: SODIUM OXYBATE
     Indication: NARCOLEPSY
     Dosage: 2.25 G, BID
     Route: 048
     Dates: start: 201210, end: 201210
  17. XYREM [Suspect]
     Active Substance: SODIUM OXYBATE
     Indication: CATAPLEXY
     Dosage: DOSE ADJUSTMENTS
     Route: 048
     Dates: start: 201210, end: 201210
  18. LAMICTAL [Concomitant]
     Active Substance: LAMOTRIGINE
  19. RISPERDAL CONSTA [Concomitant]
     Active Substance: RISPERIDONE
  20. RITALIN [Concomitant]
     Active Substance: METHYLPHENIDATE HYDROCHLORIDE
  21. XANAX [Suspect]
     Active Substance: ALPRAZOLAM
     Indication: ANXIETY
     Dosage: UNK
     Dates: start: 20160822, end: 20160822
  22. CALCIUM CARBONATE WITH D3 [Concomitant]
  23. PROBIOTIC COMPLEX [Concomitant]
  24. IBUPROFEN. [Concomitant]
     Active Substance: IBUPROFEN
  25. VITAMIN B COMPLEX [Concomitant]
     Active Substance: CYANOCOBALAMIN\DEXPANTHENOL\NIACINAMIDE\PYRIDOXINE HYDROCHLORIDE\RIBOFLAVIN 5^-PHOSPHATE SODIUM\THIAMINE HYDROCHLORIDE\VITAMIN B COMPLEX
  26. CITRACAL + D MAXIMUM [Concomitant]
  27. FLONASE ALLERGY RLF [Concomitant]

REACTIONS (12)
  - Apathy [Unknown]
  - Chest discomfort [Unknown]
  - Anxiety [Recovering/Resolving]
  - Pre-existing condition improved [Unknown]
  - Seborrhoea [Unknown]
  - Raynaud^s phenomenon [Unknown]
  - Therapeutic response unexpected [Unknown]
  - Blood pressure fluctuation [Unknown]
  - Drug interaction [Unknown]
  - Hypersensitivity [Recovering/Resolving]
  - Carpal tunnel syndrome [Not Recovered/Not Resolved]
  - Pain [Unknown]

NARRATIVE: CASE EVENT DATE: 2016
